FAERS Safety Report 5329972-8 (Version None)
Quarter: 2007Q2

REPORT INFORMATION
  Report Type: 
  Country: None (occurrence: None)
  Receive Date: 20070521
  Receipt Date: 20070518
  Transmission Date: 20071010
  Serious: Yes (Congenital Anomaly)
  Sender: FDA-Public Use
  Company Number: A0624748B

PATIENT
  Sex: Male
  Weight: 2.9 kg

DRUGS (2)
  1. AVODART [Suspect]
     Indication: ACCIDENTAL EXPOSURE
     Dosage: .5MG PER DAY
  2. NO CONCURRENT MEDICATION [Concomitant]

REACTIONS (3)
  - CRYPTORCHISM [None]
  - DRUG EXPOSURE DURING PREGNANCY [None]
  - HYPOSPADIAS [None]
